FAERS Safety Report 10195737 (Version 1)
Quarter: 2014Q2

REPORT INFORMATION
  Report Type: Spontaneous
  Country: US (occurrence: US)
  Receive Date: 20140527
  Receipt Date: 20140527
  Transmission Date: 20141212
  Serious: Yes (Hospitalization, Other)
  Sender: FDA-Public Use
  Company Number: US-BRISTOL-MYERS SQUIBB COMPANY-20782678

PATIENT
  Age: 55 Year
  Sex: Female

DRUGS (2)
  1. ABATACEPT SUBQ INJECTION 125MG/ML [Suspect]
     Indication: RHEUMATOID ARTHRITIS
     Dosage: PRE FILLED SYRINGE?30-AUG-2015,2 YRS AGO?RESTARTED ON APR-2014
     Route: 058
  2. METHOTREXATE [Concomitant]

REACTIONS (6)
  - Fall [Unknown]
  - Hip fracture [Unknown]
  - Arthropathy [Unknown]
  - Swollen tongue [Unknown]
  - Burning sensation [Unknown]
  - Leukoplakia oral [Unknown]
